FAERS Safety Report 14862587 (Version 2)
Quarter: 2018Q2

REPORT INFORMATION
  Report Type: Spontaneous
  Country: US (occurrence: US)
  Receive Date: 20180508
  Receipt Date: 20180618
  Transmission Date: 20180711
  Serious: Yes (Hospitalization)
  Sender: FDA-Public Use
  Company Number: US-VERTEX PHARMACEUTICALS-2018-002961

PATIENT
  Age: 21 Year
  Sex: Female

DRUGS (19)
  1. ORKAMBI [Suspect]
     Active Substance: IVACAFTOR\LUMACAFTOR
     Indication: CYSTIC FIBROSIS
     Dosage: 2 DOSAGE FORM (200/125 MG EACH), BID
     Route: 048
     Dates: start: 20160720
  2. DULCOLAX (BISACODYL) [Concomitant]
     Active Substance: BISACODYL
  3. ZYRTEC [Concomitant]
     Active Substance: CETIRIZINE HYDROCHLORIDE
  4. COMBIVENT [Concomitant]
     Active Substance: ALBUTEROL SULFATE\IPRATROPIUM BROMIDE
  5. FLONASE                            /00908302/ [Concomitant]
     Active Substance: MOMETASONE FUROATE
  6. CAYSTON [Concomitant]
     Active Substance: AZTREONAM
  7. GLUCAGON. [Concomitant]
     Active Substance: GLUCAGON
  8. MAGNESIUM SULFATE. [Concomitant]
     Active Substance: MAGNESIUM SULFATE
  9. PULMOZYME [Concomitant]
     Active Substance: DORNASE ALFA
  10. MIRTAZAPINE. [Concomitant]
     Active Substance: MIRTAZAPINE
  11. HYPERSAL [Concomitant]
  12. AQUADEKS                           /07679501/ [Concomitant]
     Active Substance: MINERALS\VITAMINS
  13. FLOVENT [Concomitant]
     Active Substance: FLUTICASONE PROPIONATE
  14. NITREN                             /00803101/ [Concomitant]
  15. VENTOLIN [Concomitant]
     Active Substance: ALBUTEROL SULFATE
  16. VITAMIN D [Concomitant]
     Active Substance: CHOLECALCIFEROL
  17. CREON [Concomitant]
     Active Substance: PANCRELIPASE AMYLASE\PANCRELIPASE LIPASE\PANCRELIPASE PROTEASE
  18. RANITIDINE. [Concomitant]
     Active Substance: RANITIDINE
  19. MEPHYTON [Concomitant]
     Active Substance: PHYTONADIONE

REACTIONS (1)
  - Distal intestinal obstruction syndrome [Recovered/Resolved]

NARRATIVE: CASE EVENT DATE: 20180429
